FAERS Safety Report 24585019 (Version 2)
Quarter: 2024Q4

REPORT INFORMATION
  Report Type: Spontaneous
  Country: US (occurrence: US)
  Receive Date: 20241106
  Receipt Date: 20241129
  Transmission Date: 20250115
  Serious: Yes (Life-Threatening, Hospitalization, Other)
  Sender: MERCK
  Company Number: US-009507513-2411USA000012

PATIENT
  Age: 58 Year
  Sex: Female
  Weight: 83 kg

DRUGS (32)
  1. KEYTRUDA [Suspect]
     Active Substance: PEMBROLIZUMAB
     Indication: Malignant melanoma
     Dosage: 200 MG, SINGLE
     Route: 042
     Dates: start: 20231121, end: 20231121
  2. KEYTRUDA [Suspect]
     Active Substance: PEMBROLIZUMAB
     Dosage: 200 MG, SINGLE
     Route: 042
     Dates: start: 20231213, end: 20231213
  3. KEYTRUDA [Suspect]
     Active Substance: PEMBROLIZUMAB
     Dosage: 200 MG, SINGLE
     Route: 042
     Dates: start: 20240103, end: 20240103
  4. KEYTRUDA [Suspect]
     Active Substance: PEMBROLIZUMAB
     Dosage: 200 MG, SINGLE
     Route: 042
     Dates: start: 20240123, end: 20240123
  5. KEYTRUDA [Suspect]
     Active Substance: PEMBROLIZUMAB
     Dosage: 200 MG, SINGLE
     Route: 042
     Dates: start: 20240213, end: 20240213
  6. KEYTRUDA [Suspect]
     Active Substance: PEMBROLIZUMAB
     Dosage: 200 MG, SINGLE
     Route: 042
     Dates: start: 20240305, end: 20240305
  7. KEYTRUDA [Suspect]
     Active Substance: PEMBROLIZUMAB
     Dosage: 200 MG, SINGLE
     Route: 042
     Dates: start: 20240329, end: 20240329
  8. KEYTRUDA [Suspect]
     Active Substance: PEMBROLIZUMAB
     Dosage: 200 MG, SINGLE
     Route: 042
     Dates: start: 20240501, end: 20240501
  9. KEYTRUDA [Suspect]
     Active Substance: PEMBROLIZUMAB
     Dosage: 200 MG, SINGLE
     Route: 042
     Dates: start: 20240529, end: 20240529
  10. KEYTRUDA [Suspect]
     Active Substance: PEMBROLIZUMAB
     Dosage: 200 MG, SINGLE
     Route: 042
     Dates: start: 20240619, end: 20240619
  11. KEYTRUDA [Suspect]
     Active Substance: PEMBROLIZUMAB
     Dosage: 200 MG, SINGLE
     Route: 042
     Dates: start: 20240731, end: 20240731
  12. KEYTRUDA [Suspect]
     Active Substance: PEMBROLIZUMAB
     Dosage: 200 MG, SINGLE
     Route: 042
     Dates: start: 20240823, end: 20240823
  13. KEYTRUDA [Suspect]
     Active Substance: PEMBROLIZUMAB
     Dosage: 200 MG, SINGLE
     Route: 042
     Dates: start: 20240911, end: 20240911
  14. KEYTRUDA [Suspect]
     Active Substance: PEMBROLIZUMAB
     Dosage: 200 MG, SINGLE
     Route: 042
     Dates: start: 20241002, end: 20241002
  15. ALPRAZOLAM [Concomitant]
     Active Substance: ALPRAZOLAM
  16. ALBUTEROL [Concomitant]
     Active Substance: ALBUTEROL
  17. AMLODIPINE [Concomitant]
     Active Substance: AMLODIPINE BESYLATE
  18. BACLOFEN [Concomitant]
     Active Substance: BACLOFEN
  19. GABAPENTIN [Concomitant]
     Active Substance: GABAPENTIN
  20. IBUPROFEN [Concomitant]
     Active Substance: IBUPROFEN
  21. NICOTINE [Concomitant]
     Active Substance: NICOTINE
  22. PANTOPRAZOLE [Concomitant]
     Active Substance: PANTOPRAZOLE
  23. POLYETHYLENE GLYCOLS [Concomitant]
     Active Substance: POLYETHYLENE GLYCOLS
  24. DOCUSATE SODIUM [Concomitant]
     Active Substance: DOCUSATE SODIUM
  25. TRIAMCINOLONE [Concomitant]
     Active Substance: TRIAMCINOLONE
  26. HYDROCORTISONE [Concomitant]
     Active Substance: HYDROCORTISONE
  27. NYSTATIN [Concomitant]
     Active Substance: NYSTATIN
  28. EXCEDRIN PM [Concomitant]
     Active Substance: ACETAMINOPHEN\DIPHENHYDRAMINE CITRATE
  29. ASPIRIN [Concomitant]
     Active Substance: ASPIRIN
  30. LEVOTHYROXINE [Concomitant]
     Active Substance: LEVOTHYROXINE
  31. FUROSEMIDE [Concomitant]
     Active Substance: FUROSEMIDE
  32. POTASSIUM CHLORIDE [Concomitant]
     Active Substance: POTASSIUM CHLORIDE

REACTIONS (1)
  - Sepsis [Unknown]

NARRATIVE: CASE EVENT DATE: 20241022
